FAERS Safety Report 7273214-3 (Version None)
Quarter: 2011Q1

REPORT INFORMATION
  Report Type: 
  Country: None (occurrence: None)
  Receive Date: 20110126
  Receipt Date: 20110111
  Transmission Date: 20110831
  Serious: Yes (Other)
  Sender: FDA-Public Use
  Company Number: 2011AP000029

PATIENT
  Age: 60 Year
  Sex: Female

DRUGS (5)
  1. COD LIVER OIL [Concomitant]
  2. ALENDRONATE SODIUM [Suspect]
     Indication: OSTEOPOROSIS PROPHYLAXIS
     Dosage: PO
     Route: 048
     Dates: start: 20091002, end: 20100908
  3. CALCIUM PHOSPHATE [Concomitant]
  4. COLECALCIFEROL [Concomitant]
  5. CALCIUM CARBONATE [Concomitant]

REACTIONS (1)
  - PAIN IN JAW [None]
